FAERS Safety Report 9548612 (Version 1)
Quarter: 2013Q3

REPORT INFORMATION
  Report Type: Spontaneous
  Country: US (occurrence: US)
  Receive Date: 20130924
  Receipt Date: 20130924
  Transmission Date: 20140515
  Serious: Yes (Hospitalization, Other)
  Sender: FDA-Public Use
  Company Number: US-PFIZER INC-2013270417

PATIENT
  Age: 64 Year
  Sex: Female

DRUGS (1)
  1. XELJANZ [Suspect]
     Dosage: 5 MG, UNK

REACTIONS (6)
  - Respiratory distress [Unknown]
  - Septic shock [Unknown]
  - Sepsis [Unknown]
  - Purpura fulminans [Unknown]
  - Urinary tract infection [Unknown]
  - Escherichia infection [Unknown]
